FAERS Safety Report 16642163 (Version 2)
Quarter: 2019Q4

REPORT INFORMATION
  Report Type: Report from Study
  Country: None (occurrence: NL)
  Receive Date: 20190729
  Receipt Date: 20191229
  Transmission Date: 20200122
  Serious: Yes (Other)
  Sender: FDA-Public Use
  Company Number: NL-ABBVIE-18S-114-2602074-00

PATIENT
  Age: 62 Year
  Sex: Male

DRUGS (4)
  1. DUODOPA [Suspect]
     Active Substance: CARBIDOPA\LEVODOPA
     Dosage: EXTRA DOSE AT 8AM, 1 PM AND AROUND 5/6 PM
     Route: 050
  2. MACROGOL [Concomitant]
     Active Substance: POLYETHYLENE GLYCOLS
     Indication: ABNORMAL FAECES
  3. MADOPAR [Concomitant]
     Active Substance: BENSERAZIDE HYDROCHLORIDE\LEVODOPA
     Indication: PARKINSON^S DISEASE
  4. DUODOPA [Suspect]
     Active Substance: CARBIDOPA\LEVODOPA
     Indication: PARKINSON^S DISEASE
     Dosage: MD: 7.0, CD: 2.7, ED: 1.2; 16 HOUR ADMINISTRATION
     Route: 050
     Dates: end: 2018

REACTIONS (15)
  - Abnormal dreams [Recovering/Resolving]
  - Hypophagia [Not Recovered/Not Resolved]
  - On and off phenomenon [Recovered/Resolved]
  - Stoma site inflammation [Recovered/Resolved]
  - Stoma site discharge [Recovered/Resolved]
  - On and off phenomenon [Recovering/Resolving]
  - Restlessness [Not Recovered/Not Resolved]
  - Muscle rigidity [Not Recovered/Not Resolved]
  - Dementia [Not Recovered/Not Resolved]
  - Bradykinesia [Not Recovered/Not Resolved]
  - Device issue [Not Recovered/Not Resolved]
  - Impaired self-care [Not Recovered/Not Resolved]
  - Dyskinesia [Recovered/Resolved]
  - Pulmonary embolism [Unknown]
  - Device breakage [Unknown]

NARRATIVE: CASE EVENT DATE: 201903
